FAERS Safety Report 6880810-1 (Version None)
Quarter: 2010Q2

REPORT INFORMATION
  Report Type: 
  Country: None (occurrence: None)
  Receive Date: 20100630
  Receipt Date: 20090523
  Transmission Date: 20101027
  Serious: Yes (Other)
  Sender: FDA-Public Use
  Company Number: 2009212998

PATIENT
  Age: 19 Year
  Sex: Male

DRUGS (4)
  1. ZITHROMAX [Suspect]
     Indication: BRONCHITIS
     Dosage: ORAL
     Route: 048
     Dates: start: 20090307, end: 20090312
  2. ZITHROMAX [Suspect]
     Indication: SINUSITIS
     Dosage: ORAL
     Route: 048
     Dates: start: 20090307, end: 20090312
  3. LEVOXYL [Concomitant]
  4. CYTOMEL [Concomitant]

REACTIONS (4)
  - CERUMEN IMPACTION [None]
  - DEAFNESS [None]
  - HYPOACUSIS [None]
  - TINNITUS [None]
